FAERS Safety Report 5091961-9 (Version None)
Quarter: 2006Q3

REPORT INFORMATION
  Report Type: 
  Country: None (occurrence: None)
  Receive Date: 20060825
  Receipt Date: 20060814
  Transmission Date: 20061208
  Serious: Yes (Other)
  Sender: FDA-Public Use
  Company Number: 2006-146709-NL

PATIENT
  Age: 43 Year
  Sex: Female

DRUGS (3)
  1. DEXAMETHASONE TAB [Suspect]
     Dosage: DF
  2. ALBENDAZOLE [Concomitant]
  3. CLOBAZAM [Concomitant]

REACTIONS (4)
  - BRAIN OEDEMA [None]
  - HEADACHE [None]
  - INFLAMMATION [None]
  - PYREXIA [None]
